FAERS Safety Report 21505529 (Version 1)
Quarter: 2022Q4

REPORT INFORMATION
  Report Type: Spontaneous
  Country: DE (occurrence: DE)
  Receive Date: 20221026
  Receipt Date: 20221026
  Transmission Date: 20230113
  Serious: Yes (Hospitalization, Other)
  Sender: FDA-Public Use
  Company Number: DE-ALKEM LABORATORIES LIMITED-DE-ALKEM-2022-10999

PATIENT
  Sex: Female
  Weight: 70 kg

DRUGS (6)
  1. FINGOLIMOD [Suspect]
     Active Substance: FINGOLIMOD
     Indication: Multiple sclerosis
     Dosage: 0.5 MILLIGRAM, QD, EVERY 1 DAY, CAPSULE, HARD
     Route: 048
     Dates: start: 20151117
  2. DALFAMPRIDINE [Concomitant]
     Active Substance: DALFAMPRIDINE
     Indication: Gait disturbance
     Dosage: 20 MILLIGRAM, UNK
     Route: 065
     Dates: start: 20180404
  3. METHYLPREDNISOLONE [Concomitant]
     Active Substance: METHYLPREDNISOLONE
     Indication: Multiple sclerosis relapse
     Dosage: 1000 MILLIGRAM, UNK
     Route: 065
     Dates: start: 20180329, end: 20180331
  4. NABIXIMOLS [Concomitant]
     Active Substance: NABIXIMOLS
     Indication: Muscle spasticity
     Dosage: 30 MILLILITER, QD, EVERY 1 DAY
     Route: 065
     Dates: start: 20150205
  5. Spasmex [Concomitant]
     Indication: Bladder disorder
     Dosage: 90 MILLIGRAM, QD, EVERY 1 DAY
     Route: 065
     Dates: start: 20111129
  6. TIZANIDINE [Concomitant]
     Active Substance: TIZANIDINE
     Indication: Muscle spasticity
     Dosage: 4 MILLIGRAM, UNK
     Route: 065
     Dates: start: 20150209

REACTIONS (5)
  - Infection [Recovered/Resolved]
  - Nervous system disorder [Recovered/Resolved]
  - Pyelonephritis [Unknown]
  - Urinary tract infection [Unknown]
  - Gait inability [Unknown]

NARRATIVE: CASE EVENT DATE: 20180203
